FAERS Safety Report 13523979 (Version 2)
Quarter: 2019Q1

REPORT INFORMATION
  Report Type: Report from Study
  Country: GB (occurrence: GB)
  Receive Date: 20170508
  Receipt Date: 20190319
  Transmission Date: 20190417
  Serious: Yes (Other)
  Sender: FDA-Public Use
  Company Number: PHHY2014GB071008

PATIENT
  Age: 32 Year
  Sex: Male

DRUGS (1)
  1. GILENYA [Suspect]
     Active Substance: FINGOLIMOD HYDROCHLORIDE
     Indication: MULTIPLE SCLEROSIS
     Dosage: QD
     Route: 048
     Dates: start: 20140204

REACTIONS (18)
  - Neutropenia [Recovered/Resolved]
  - Dyspnoea [Recovered/Resolved]
  - Diarrhoea [Recovered/Resolved]
  - Constipation [Recovered/Resolved]
  - Gamma-glutamyltransferase increased [Unknown]
  - Chest pain [Recovered/Resolved]
  - Dizziness [Recovered/Resolved]
  - Fungal skin infection [Recovered/Resolved]
  - Dizziness [Recovered/Resolved]
  - White blood cell count decreased [Unknown]
  - Headache [Unknown]
  - Dizziness [Unknown]
  - Lymphopenia [Not Recovered/Not Resolved]
  - Pruritus [Recovered/Resolved]
  - Paraesthesia [Recovered/Resolved]
  - Pain in extremity [Unknown]
  - Neutropenia [Recovered/Resolved]
  - Hypoacusis [Not Recovered/Not Resolved]

NARRATIVE: CASE EVENT DATE: 20140206
